FAERS Safety Report 5856283-4 (Version None)
Quarter: 2008Q3

REPORT INFORMATION
  Report Type: 
  Country: None (occurrence: None)
  Receive Date: 20080825
  Receipt Date: 20080820
  Transmission Date: 20090109
  Serious: Yes (Other)
  Sender: FDA-Public Use
  Company Number: B0533676A

PATIENT
  Age: 73 Year
  Sex: Male
  Weight: 80 kg

DRUGS (4)
  1. ESKAZOLE [Suspect]
     Route: 048
     Dates: start: 20071126, end: 20080416
  2. IRBESARTAN [Concomitant]
     Indication: DRUG USE FOR UNKNOWN INDICATION
     Route: 065
  3. AVANDIA [Concomitant]
     Route: 065
     Dates: end: 20080301
  4. PRAVASTATIN [Concomitant]
     Indication: DRUG USE FOR UNKNOWN INDICATION
     Route: 065
     Dates: end: 20080301

REACTIONS (4)
  - ASTHENIA [None]
  - GAMMA-GLUTAMYLTRANSFERASE INCREASED [None]
  - HEPATITIS [None]
  - TRANSAMINASES INCREASED [None]
